FAERS Safety Report 24105736 (Version 1)
Quarter: 2024Q3

REPORT INFORMATION
  Report Type: Spontaneous
  Country: US (occurrence: US)
  Receive Date: 20240717
  Receipt Date: 20240717
  Transmission Date: 20241016
  Serious: No
  Sender: MILLICENT HOLDINGS
  Company Number: US-Millicent Holdings Ltd.-MILL20241010

PATIENT
  Age: 56 Year
  Sex: Female

DRUGS (5)
  1. FEMRING [Suspect]
     Active Substance: ESTRADIOL ACETATE
     Indication: Menopausal symptoms
     Dosage: 0.10 MG/DAY
     Route: 067
     Dates: start: 20240615
  2. FEMRING [Suspect]
     Active Substance: ESTRADIOL ACETATE
     Dosage: 0.10 MG/DAY
     Route: 067
     Dates: start: 202405
  3. FEMRING [Suspect]
     Active Substance: ESTRADIOL ACETATE
     Dosage: 0.10 MG/DAY
     Route: 067
     Dates: start: 202403, end: 202404
  4. FEMRING [Suspect]
     Active Substance: ESTRADIOL ACETATE
     Indication: Menopausal symptoms
     Dosage: 0.05 MG/DAY
     Route: 067
     Dates: start: 202404, end: 202405
  5. PROMETRIUM [Concomitant]
     Active Substance: PROGESTERONE
     Indication: Menopausal symptoms
     Dosage: 100 MG
     Route: 065

REACTIONS (7)
  - Brain fog [Recovered/Resolved]
  - Postmenopausal haemorrhage [Not Recovered/Not Resolved]
  - Postmenopausal haemorrhage [Recovered/Resolved]
  - Feeling abnormal [Recovered/Resolved]
  - Feeling abnormal [Recovered/Resolved]
  - Headache [Not Recovered/Not Resolved]
  - Product dose omission issue [None]

NARRATIVE: CASE EVENT DATE: 20240101
